FAERS Safety Report 4659363-4 (Version None)
Quarter: 2005Q2

REPORT INFORMATION
  Report Type: 
  Country: None (occurrence: None)
  Receive Date: 20050510
  Receipt Date: 20050427
  Transmission Date: 20051028
  Serious: Yes (Hospitalization)
  Sender: FDA-Public Use
  Company Number: 211677

PATIENT
  Age: 43 Year
  Sex: Male
  Weight: 70 kg

DRUGS (10)
  1. MABTHERA (RITUXIMAB) CONC FOR SOLUTION FOR INFUSION [Suspect]
     Indication: CHRONIC LYMPHOCYTIC LEUKAEMIA
     Dosage: SEE IMAGE, INTRAVENOUS
     Route: 042
     Dates: start: 20031111, end: 20040401
  2. MABTHERA (RITUXIMAB) CONC FOR SOLUTION FOR INFUSION [Suspect]
     Indication: CHRONIC LYMPHOCYTIC LEUKAEMIA
     Dosage: SEE IMAGE, INTRAVENOUS
     Route: 042
     Dates: start: 20040106, end: 20040402
  3. FLUDARABINE PHOSPHATE [Concomitant]
  4. CYCLOPHOSPHAMIDE [Concomitant]
  5. NEUPOGEN [Concomitant]
  6. PANTOZOL (PANTOPRAZOLE) [Concomitant]
  7. DIFLUCAN [Concomitant]
  8. CIPROFLOXACIN [Concomitant]
  9. ACICLOVIR (ACYCLOVIR) [Concomitant]
  10. CLAVERSAL (MESALAMINE) [Concomitant]

REACTIONS (8)
  - COLITIS [None]
  - DISEASE PROGRESSION [None]
  - GENERAL PHYSICAL CONDITION ABNORMAL [None]
  - HAEMATOCRIT DECREASED [None]
  - LEUKOPENIA [None]
  - PROCTITIS ULCERATIVE [None]
  - PYREXIA [None]
  - WEIGHT DECREASED [None]
